FAERS Safety Report 16353104 (Version 1)
Quarter: 2019Q2

REPORT INFORMATION
  Report Type: Spontaneous
  Country: US (occurrence: US)
  Receive Date: 20190520
  Receipt Date: 20190520
  Transmission Date: 20190711
  Serious: Yes (Life-Threatening, Hospitalization)
  Sender: FDA-Public Use
  Company Number: None

PATIENT
  Age: 45 Year
  Sex: Female
  Weight: 103.5 kg

DRUGS (1)
  1. AVASTIN [Suspect]
     Active Substance: BEVACIZUMAB
     Indication: DIABETES MELLITUS
     Route: 047
     Dates: start: 20190419

REACTIONS (5)
  - Headache [None]
  - Dizziness [None]
  - Eye pain [None]
  - Cerebral haemorrhage [None]
  - Visual impairment [None]

NARRATIVE: CASE EVENT DATE: 20190421
